FAERS Safety Report 10423673 (Version 3)
Quarter: 2014Q3

REPORT INFORMATION
  Report Type: Spontaneous
  Country: JP (occurrence: JP)
  Receive Date: 20140902
  Receipt Date: 20140917
  Transmission Date: 20150326
  Serious: Yes (Death, Other)
  Sender: FDA-Public Use
  Company Number: PHHY2014JP107658

PATIENT
  Age: 78 Year
  Sex: Male
  Weight: 66 kg

DRUGS (11)
  1. ETOPOSIDE. [Suspect]
     Active Substance: ETOPOSIDE
     Indication: METASTASES TO BONE
  2. CEFEPIME [Suspect]
     Active Substance: CEFEPIME\CEFEPIME HYDROCHLORIDE
  3. CARBOPLATIN. [Suspect]
     Active Substance: CARBOPLATIN
     Indication: METASTASES TO BONE
  4. EFONIDIPINE [Concomitant]
     Active Substance: EFONIDIPINE
     Dosage: 40 MG, PER DAY
  5. OMEPRAZOLE. [Concomitant]
     Active Substance: OMEPRAZOLE
     Dosage: 20 MG, PER DAY
  6. MIGLITOL [Concomitant]
     Active Substance: MIGLITOL
     Dosage: 50 MG, PER DAY
  7. ETOPOSIDE. [Suspect]
     Active Substance: ETOPOSIDE
     Indication: LARGE CELL LUNG CANCER
  8. CARBOPLATIN. [Suspect]
     Active Substance: CARBOPLATIN
     Indication: LARGE CELL LUNG CANCER
  9. METFORMIN [Concomitant]
     Active Substance: METFORMIN HYDROCHLORIDE
     Dosage: 500 MG, PER DAY
  10. FENOFIBRATE. [Concomitant]
     Active Substance: FENOFIBRATE
     Dosage: 100 MG, PER DAY
  11. RADIATION [Concomitant]
     Active Substance: RADIATION THERAPY
     Indication: METASTASES TO BONE
     Dosage: 3 GY, 10 TIMES

REACTIONS (3)
  - Altered state of consciousness [Unknown]
  - Febrile neutropenia [Unknown]
  - Septic shock [Fatal]
